FAERS Safety Report 15318976 (Version 1)
Quarter: 2018Q3

REPORT INFORMATION
  Report Type: Spontaneous
  Country: US (occurrence: US)
  Receive Date: 20180820
  Receipt Date: 20180820
  Transmission Date: 20181010
  Serious: No
  Sender: FDA-Public Use
  Company Number: None

PATIENT
  Age: 57 Year
  Sex: Male

DRUGS (12)
  1. DOXYCYCLINE 20MG [Concomitant]
     Active Substance: DOXYCYCLINE
  2. PANTOPRAZOLE 40MG [Concomitant]
     Active Substance: PANTOPRAZOLE SODIUM
  3. OCTREOTRIDE [Suspect]
     Active Substance: OCTREOTIDE
     Indication: CARCINOID SYNDROME
     Route: 058
     Dates: start: 20160510
  4. DULOXETINE 20MG [Concomitant]
     Active Substance: DULOXETINE
  5. FENTANYL 100MCG [Concomitant]
  6. LISINOPRIL. [Concomitant]
     Active Substance: LISINOPRIL
  7. ZOLPIDEM [Concomitant]
     Active Substance: ZOLPIDEM\ZOLPIDEM TARTRATE
  8. METOPROLOL 25MG [Concomitant]
     Active Substance: METOPROLOL
  9. MIDODRINE 5MG [Concomitant]
     Active Substance: MIDODRINE
  10. HYDROCORTISONE 5MG [Concomitant]
  11. CETIRIZINE [Concomitant]
     Active Substance: CETIRIZINE HYDROCHLORIDE
  12. UROSDIOL 300MG [Concomitant]

REACTIONS (1)
  - Hospitalisation [None]

NARRATIVE: CASE EVENT DATE: 20180810
